FAERS Safety Report 20072015 (Version 3)
Quarter: 2021Q4

REPORT INFORMATION
  Report Type: Other
  Country: CA (occurrence: CA)
  Receive Date: 20211116
  Receipt Date: 20211203
  Transmission Date: 20220303
  Serious: Yes (Other)
  Sender: FDA-Public Use
  Company Number: CA-CELLTRION INC.-2021CA015063

PATIENT

DRUGS (6)
  1. RITUXIMAB [Suspect]
     Active Substance: RITUXIMAB
     Indication: Nodular lymphocyte predominant Hodgkin lymphoma
     Dosage: 1 DOSAGE FORM
     Route: 042
  2. ACETAMINOPHEN [Concomitant]
     Active Substance: ACETAMINOPHEN
  3. CYCLOPHOSPHAMIDE/DOXORUBICIN HYDROCHLORIDE/PREDNISONE/VINCRISTINE SULF [Concomitant]
  4. MEPERIDINE [Concomitant]
     Active Substance: MEPERIDINE
  5. MONTELUKAST [Concomitant]
     Active Substance: MONTELUKAST SODIUM
     Dosage: 10 MG
     Route: 048
  6. RUPATADINE [Concomitant]
     Active Substance: RUPATADINE

REACTIONS (4)
  - Hypotension [Recovered/Resolved]
  - Intentional product use issue [Recovered/Resolved]
  - Off label use [Recovered/Resolved]
  - Off label use [Unknown]
